FAERS Safety Report 12183123 (Version 2)
Quarter: 2016Q2

REPORT INFORMATION
  Report Type: Spontaneous
  Country: US (occurrence: US)
  Receive Date: 20160316
  Receipt Date: 20160504
  Transmission Date: 20160815
  Serious: Yes (Hospitalization, Other)
  Sender: FDA-Public Use
  Company Number: US-ENDO PHARMACEUTICALS INC.-2016-001643

PATIENT
  Age: 42 Year
  Sex: Male
  Weight: 102.15 kg

DRUGS (2)
  1. SUMAVEL DOSEPRO [Suspect]
     Active Substance: SUMATRIPTAN SUCCINATE
     Route: 058
     Dates: start: 201602
  2. SUMAVEL DOSEPRO [Suspect]
     Active Substance: SUMATRIPTAN SUCCINATE
     Indication: MIGRAINE
     Route: 058

REACTIONS (3)
  - Drug ineffective [Unknown]
  - Migraine [Recovered/Resolved]
  - Cluster headache [Recovering/Resolving]

NARRATIVE: CASE EVENT DATE: 2014
